FAERS Safety Report 19768524 (Version 1)
Quarter: 2021Q3

REPORT INFORMATION
  Report Type: Report from Study
  Country: US (occurrence: US)
  Receive Date: 20210831
  Receipt Date: 20210831
  Transmission Date: 20211014
  Serious: Yes (Other)
  Sender: FDA-Public Use
  Company Number: US-SA-2021SA285111

PATIENT
  Age: 70 Year
  Sex: Male

DRUGS (1)
  1. DUPILUMAB [Suspect]
     Active Substance: DUPILUMAB
     Indication: ASTHMA
     Dosage: 600 MG, 1X
     Route: 058
     Dates: start: 20210824, end: 20210824

REACTIONS (10)
  - Headache [Not Recovered/Not Resolved]
  - Off label use [Unknown]
  - Angina pectoris [Unknown]
  - Disorientation [Unknown]
  - Fatigue [Not Recovered/Not Resolved]
  - Blood pressure increased [Unknown]
  - Palpitations [Unknown]
  - Dizziness [Unknown]
  - Nausea [Unknown]
  - Throat clearing [Unknown]

NARRATIVE: CASE EVENT DATE: 20210824
